FAERS Safety Report 9945909 (Version 1)
Quarter: 2014Q1

REPORT INFORMATION
  Report Type: Spontaneous
  Country: US (occurrence: US)
  Receive Date: 20140303
  Receipt Date: 20140303
  Transmission Date: 20141002
  Serious: No
  Sender: FDA-Public Use
  Company Number: US-AMGEN-USASP2013073780

PATIENT
  Age: 43 Year
  Sex: Male
  Weight: 65.76 kg

DRUGS (4)
  1. ENBREL [Suspect]
     Indication: PSORIATIC ARTHROPATHY
     Dosage: UNK
     Route: 065
     Dates: start: 20130101, end: 20130301
  2. CLONIDINE [Concomitant]
     Dosage: UNK
  3. MULTIVITAMINS, PLAIN [Concomitant]
     Dosage: UNK
  4. OMEGA 3                            /01334101/ [Concomitant]
     Dosage: UNK

REACTIONS (2)
  - Stomatitis [Recovered/Resolved]
  - Tremor [Recovered/Resolved]
